FAERS Safety Report 17891393 (Version 7)
Quarter: 2022Q1

REPORT INFORMATION
  Report Type: Spontaneous
  Country: ES (occurrence: ES)
  Receive Date: 20200612
  Receipt Date: 20220318
  Transmission Date: 20220423
  Serious: Yes (Death, Life-Threatening, Hospitalization, Other)
  Sender: FDA-Public Use
  Company Number: ES-GRUNENTHAL-2020-103017

PATIENT
  Age: 95 Year
  Sex: Female

DRUGS (24)
  1. OMEPRAZOLE [Interacting]
     Active Substance: OMEPRAZOLE
     Indication: Product used for unknown indication
     Dosage: 20 MILLIGRAM, 1/DAY
     Route: 065
  2. ACETAMINOPHEN\TRAMADOL [Suspect]
     Active Substance: ACETAMINOPHEN\TRAMADOL
     Indication: Product used for unknown indication
     Dosage: 37.5 / 325 MG AT BREAKFAST AND DINNER
  3. SIMVASTATIN [Interacting]
     Active Substance: SIMVASTATIN
     Indication: Product used for unknown indication
     Dosage: 10 MILLIGRAM, 1/DAY
     Route: 065
  4. ACETAMINOPHEN\TRAMADOL [Interacting]
     Active Substance: ACETAMINOPHEN\TRAMADOL
     Indication: Product used for unknown indication
     Dosage: 37.5/ 325 MG  (1 DOSAGE FORM, EVERY 12 HRS)
     Route: 065
  5. ACETAMINOPHEN\TRAMADOL [Interacting]
     Active Substance: ACETAMINOPHEN\TRAMADOL
     Dosage: AT BREAKFAST AND DINNER
  6. SERTRALINE [Interacting]
     Active Substance: SERTRALINE HYDROCHLORIDE
     Indication: Pseudodementia
     Dosage: 50 MILLIGRAM, 1/DAY
     Route: 065
  7. SERTRALINE [Interacting]
     Active Substance: SERTRALINE HYDROCHLORIDE
     Indication: Depression
  8. RISPERIDONE [Interacting]
     Active Substance: RISPERIDONE
     Indication: Delirium
     Dosage: 2 MILLIGRAM, 1/DAY
     Route: 065
  9. RISPERIDONE [Interacting]
     Active Substance: RISPERIDONE
     Indication: Depression
     Dosage: 4 MILLIGRAM, 1/DAY
     Route: 065
  10. QUETIAPINE [Interacting]
     Active Substance: QUETIAPINE
     Indication: Delirium
     Dosage: 50 MILLIGRAM, 1/DAY
     Route: 065
  11. QUETIAPINE [Interacting]
     Active Substance: QUETIAPINE
     Indication: Depression
  12. FUROSEMIDE [Suspect]
     Active Substance: FUROSEMIDE
     Indication: Product used for unknown indication
     Dosage: 80 MILLIGRAM, 1/DAY
     Route: 065
  13. ALPRAZOLAM [Suspect]
     Active Substance: ALPRAZOLAM
     Indication: Dementia
     Dosage: UNK
  14. PAROXETINE [Interacting]
     Active Substance: PAROXETINE
     Indication: Pseudodementia
     Dosage: UNK
     Dates: start: 2007
  15. PAROXETINE [Interacting]
     Active Substance: PAROXETINE
     Indication: Dementia
  16. LOSARTAN [Suspect]
     Active Substance: LOSARTAN
     Indication: Product used for unknown indication
     Dosage: 100 MILLIGRAM, 1/DAY
     Route: 065
  17. AMLODIPINE [Suspect]
     Active Substance: AMLODIPINE BESYLATE
     Indication: Product used for unknown indication
     Dosage: 10 MILLIGRAM, 1/DAY
     Route: 065
  18. SPIRONOLACTONE [Suspect]
     Active Substance: SPIRONOLACTONE
     Indication: Product used for unknown indication
     Dosage: 100 MILLIGRAM, 1/DAY
     Route: 065
  19. ACENOCOUMAROL [Suspect]
     Active Substance: ACENOCOUMAROL
     Indication: Product used for unknown indication
     Dosage: 1.2857 MILLIGRAM DAILY; (D9 MG, QD)
     Route: 065
  20. LORAZEPAM [Interacting]
     Active Substance: LORAZEPAM
     Indication: Delirium
     Dosage: 2 MILLIGRAM, DAILY
     Route: 065
  21. LORAZEPAM [Interacting]
     Active Substance: LORAZEPAM
     Indication: Insomnia
  22. TRAZODONE [Interacting]
     Active Substance: TRAZODONE HYDROCHLORIDE
     Indication: Pseudodementia
     Dosage: UNK
     Dates: start: 2007
  23. TRAZODONE [Interacting]
     Active Substance: TRAZODONE HYDROCHLORIDE
     Indication: Dementia
     Dosage: UNK
  24. CLONAZEPAM [Suspect]
     Active Substance: CLONAZEPAM
     Indication: Dementia
     Dosage: UNK

REACTIONS (14)
  - Serotonin syndrome [Fatal]
  - Cardio-respiratory arrest [Fatal]
  - Drug interaction [Fatal]
  - Neurological decompensation [Unknown]
  - Disorganised speech [Unknown]
  - Gastrointestinal sounds abnormal [Unknown]
  - Delirium [Recovering/Resolving]
  - Blood pressure increased [Unknown]
  - Confusional state [Unknown]
  - Dysphagia [Unknown]
  - Diarrhoea [Unknown]
  - Sleep disorder [Unknown]
  - Asthenia [Unknown]
  - Creatinine renal clearance decreased [Unknown]
